FAERS Safety Report 17399022 (Version 3)
Quarter: 2022Q1

REPORT INFORMATION
  Report Type: Spontaneous
  Country: US (occurrence: US)
  Receive Date: 20200210
  Receipt Date: 20220303
  Transmission Date: 20220423
  Serious: Yes (Other)
  Sender: FDA-Public Use
  Company Number: US-BIOMARINAP-US-2020-128359

PATIENT
  Age: 30 Year
  Sex: Female

DRUGS (4)
  1. LARONIDASE [Suspect]
     Active Substance: LARONIDASE
     Indication: Mucopolysaccharidosis I
     Dosage: 64 MG, QW
     Route: 042
     Dates: start: 20191219
  2. LARONIDASE [Suspect]
     Active Substance: LARONIDASE
     Dosage: 58 MG, QW
     Route: 042
     Dates: start: 20191223
  3. METOPROLOL SUCCINATE [Concomitant]
     Active Substance: METOPROLOL SUCCINATE
     Indication: Cardiac dysfunction
     Dosage: 25 MG
  4. ENALAPRIL [Concomitant]
     Active Substance: ENALAPRIL
     Indication: Cardiac output decreased
     Dosage: 1 DF, BID (1 IN MORNING, 1 IN AFTERNOON)

REACTIONS (3)
  - Cardiac dysfunction [Unknown]
  - Sleep disorder [Unknown]
  - Sleep apnoea syndrome [Unknown]

NARRATIVE: CASE EVENT DATE: 20200305
